FAERS Safety Report 9749462 (Version 5)
Quarter: 2014Q1

REPORT INFORMATION
  Report Type: Spontaneous
  Country: US (occurrence: US)
  Receive Date: 20131212
  Receipt Date: 20140210
  Transmission Date: 20141002
  Serious: Yes (Hospitalization, Other)
  Sender: FDA-Public Use
  Company Number: US-GILEAD-2013-0089294

PATIENT
  Sex: Female

DRUGS (4)
  1. LETAIRIS [Suspect]
     Indication: PULMONARY HYPERTENSION
     Dosage: 10 MG, QD
     Route: 065
     Dates: start: 20120412
  2. LETAIRIS [Suspect]
     Indication: ATRIAL SEPTAL DEFECT
  3. TYVASO [Concomitant]
  4. REVATIO [Concomitant]

REACTIONS (6)
  - Arthritis infective [Unknown]
  - Lung disorder [Unknown]
  - Fall [Unknown]
  - Pain in extremity [Unknown]
  - Pharyngeal disorder [Unknown]
  - Oedema peripheral [Unknown]
